FAERS Safety Report 6386020-9 (Version None)
Quarter: 2009Q4

REPORT INFORMATION
  Report Type: 
  Country: None (occurrence: None)
  Receive Date: 20091002
  Receipt Date: 20081104
  Transmission Date: 20100525
  Serious: Yes (Other)
  Sender: FDA-Public Use
  Company Number: US-ASTRAZENECA-2008UW24644

PATIENT
  Age: 70 Year
  Sex: Female
  Weight: 81.6 kg

DRUGS (5)
  1. ARIMIDEX [Suspect]
     Indication: BREAST CANCER
     Route: 048
     Dates: start: 20040101
  2. DIOVAN [Concomitant]
  3. LEXAPRO [Concomitant]
  4. METFORMIN [Concomitant]
  5. SINGULAIR [Concomitant]

REACTIONS (7)
  - ARTHRALGIA [None]
  - ARTHRITIS [None]
  - BACK PAIN [None]
  - CATARACT [None]
  - HYPOAESTHESIA [None]
  - PRURITUS [None]
  - VISION BLURRED [None]
